FAERS Safety Report 21598291 (Version 1)
Quarter: 2022Q4

REPORT INFORMATION
  Report Type: Spontaneous
  Country: AT (occurrence: AT)
  Receive Date: 20221115
  Receipt Date: 20221115
  Transmission Date: 20230113
  Serious: Yes (Other)
  Sender: FDA-Public Use
  Company Number: None

PATIENT
  Age: 43 Year
  Sex: Female

DRUGS (1)
  1. ALLEGRA [Suspect]
     Active Substance: FEXOFENADINE HYDROCHLORIDE
     Dosage: UNK
     Dates: start: 20220906, end: 20221015

REACTIONS (8)
  - Oropharyngeal blistering [Unknown]
  - Dyspnoea [Unknown]
  - Sense of oppression [Unknown]
  - Nightmare [Unknown]
  - Palpitations [Unknown]
  - Dizziness [Unknown]
  - Middle insomnia [Unknown]
  - Initial insomnia [Unknown]

NARRATIVE: CASE EVENT DATE: 20220901
